FAERS Safety Report 7087064-4 (Version None)
Quarter: 2010Q4

REPORT INFORMATION
  Report Type: 
  Country: None (occurrence: None)
  Receive Date: 20101106
  Receipt Date: 20101028
  Transmission Date: 20110411
  Serious: No
  Sender: FDA-Public Use
  Company Number: US-WYE-H18430110

PATIENT
  Sex: Female

DRUGS (5)
  1. ADVIL [Suspect]
  2. ALEVE (CAPLET) [Suspect]
  3. BENADRYL [Suspect]
  4. LYRICA [Suspect]
  5. AMITRIPTYLINE HCL [Suspect]

REACTIONS (1)
  - DRUG INEFFECTIVE [None]
